APPROVED DRUG PRODUCT: DOFETILIDE
Active Ingredient: DOFETILIDE
Strength: 0.125MG
Dosage Form/Route: CAPSULE;ORAL
Application: A211223 | Product #001
Applicant: PRINSTON PHARMACEUTICAL INC
Approved: Dec 17, 2019 | RLD: No | RS: No | Type: DISCN